FAERS Safety Report 9922540 (Version 1)
Quarter: 2014Q1

REPORT INFORMATION
  Report Type: Spontaneous
  Country: US (occurrence: US)
  Receive Date: 20140225
  Receipt Date: 20140225
  Transmission Date: 20141002
  Serious: No
  Sender: FDA-Public Use
  Company Number: US-ABBVIE-13P-163-1051757-00

PATIENT
  Age: 70 Year
  Sex: Male
  Weight: 83.99 kg

DRUGS (7)
  1. ANDROGEL [Suspect]
     Indication: BLOOD TESTOSTERONE DECREASED
     Dosage: 1 PACKET
     Route: 061
     Dates: start: 2008, end: 201211
  2. SIMVASTATIN [Suspect]
     Indication: BLOOD CHOLESTEROL INCREASED
  3. METFORMIN [Concomitant]
     Indication: TYPE 2 DIABETES MELLITUS
  4. WARFARIN [Concomitant]
     Indication: TRANSIENT ISCHAEMIC ATTACK
  5. ASPIRIN [Concomitant]
     Indication: TRANSIENT ISCHAEMIC ATTACK
  6. MULTIVITAMIN [Concomitant]
     Indication: VITAMIN SUPPLEMENTATION
  7. GLUCOSAMINE CHONDROITIN [Concomitant]
     Indication: SUPPLEMENTATION THERAPY

REACTIONS (3)
  - Application site pain [Not Recovered/Not Resolved]
  - Musculoskeletal stiffness [Not Recovered/Not Resolved]
  - Drug ineffective [Recovered/Resolved]
